FAERS Safety Report 14894374 (Version 1)
Quarter: 2018Q2

REPORT INFORMATION
  Report Type: Spontaneous
  Country: ZA (occurrence: ZA)
  Receive Date: 20180515
  Receipt Date: 20180515
  Transmission Date: 20180711
  Serious: No
  Sender: FDA-Public Use
  Company Number: ZA-LUPIN PHARMACEUTICALS INC.-2018-02126

PATIENT
  Age: 63 Year
  Sex: Male

DRUGS (6)
  1. TRAMACET [Concomitant]
     Active Substance: ACETAMINOPHEN\TRAMADOL
     Indication: PAIN
     Dosage: 325MG/37.5 MG, UNK
     Route: 048
     Dates: start: 201711
  2. ASPAVOR [Concomitant]
     Active Substance: ATORVASTATIN
     Indication: BLOOD CHOLESTEROL ABNORMAL
     Dosage: 40 MG, UNK
     Route: 048
     Dates: start: 201709
  3. OMNAIR [Concomitant]
     Active Substance: CICLESONIDE
     Indication: RHINITIS ALLERGIC
     Dosage: 50 ?G, UNK
     Route: 045
     Dates: start: 201710
  4. ZOPIVANE [Concomitant]
     Active Substance: ZOPICLONE
     Indication: SLEEP DISORDER
     Dosage: 7.5 MG, UNK
     Route: 048
     Dates: start: 201710
  5. DYNAVAL CO 160/12.5 MG [Suspect]
     Active Substance: HYDROCHLOROTHIAZIDE\VALSARTAN
     Indication: HYPERTENSION
     Dosage: 160/12.5 MG, UNK
     Route: 048
     Dates: start: 201802, end: 201803
  6. CO-DIOVAN [Concomitant]
     Active Substance: HYDROCHLOROTHIAZIDE\VALSARTAN
     Indication: HYPERTENSION
     Dosage: 60/12.5 MG, UNK
     Route: 048

REACTIONS (1)
  - Headache [Unknown]

NARRATIVE: CASE EVENT DATE: 201802
